FAERS Safety Report 9586339 (Version 3)
Quarter: 2013Q4

REPORT INFORMATION
  Report Type: Report from Study
  Country: DE (occurrence: DE)
  Receive Date: 20131003
  Receipt Date: 20131210
  Transmission Date: 20140711
  Serious: Yes (Death, Hospitalization)
  Sender: FDA-Public Use
  Company Number: PHHY2013DE109932

PATIENT
  Sex: Female
  Weight: 70 kg

DRUGS (2)
  1. ICL670A [Suspect]
     Indication: HAEMOCHROMATOSIS
     Dosage: 500 MG, DAILY
     Route: 048
     Dates: start: 20120307, end: 20130924
  2. VIDAZA [Concomitant]
     Indication: ACUTE MYELOID LEUKAEMIA
     Dosage: 140 MG, DAILY (D5Q4W)
     Route: 042
     Dates: start: 20121024, end: 20130720

REACTIONS (2)
  - Acute myeloid leukaemia [Fatal]
  - General physical health deterioration [None]
